FAERS Safety Report 23564549 (Version 3)
Quarter: 2024Q2

REPORT INFORMATION
  Report Type: Report from Study
  Country: TH (occurrence: TH)
  Receive Date: 20240226
  Receipt Date: 20240507
  Transmission Date: 20240716
  Serious: Yes (Death, Other)
  Sender: FDA-Public Use
  Company Number: TH-002147023-NVSC2022TH249942

PATIENT
  Sex: Female

DRUGS (3)
  1. KISQALI [Suspect]
     Active Substance: RIBOCICLIB
     Indication: Breast cancer metastatic
     Dosage: 3 DOSAGE FORM, QD
     Route: 048
     Dates: start: 202205
  2. KISQALI [Suspect]
     Active Substance: RIBOCICLIB
     Dosage: 200 MG
     Route: 048
  3. KISQALI [Suspect]
     Active Substance: RIBOCICLIB
     Dosage: 200 MG (3 TABLETS), QD (RESUME)
     Route: 048

REACTIONS (7)
  - Breast cancer metastatic [Fatal]
  - Rectal haemorrhage [Unknown]
  - Feeling hot [Unknown]
  - Lung neoplasm [Unknown]
  - Constipation [Unknown]
  - Platelet count decreased [Recovered/Resolved]
  - Malaise [Unknown]
